FAERS Safety Report 12914086 (Version 1)
Quarter: 2016Q4

REPORT INFORMATION
  Report Type: Spontaneous
  Country: AU (occurrence: AU)
  Receive Date: 20161105
  Receipt Date: 20161105
  Transmission Date: 20170207
  Serious: Yes (Other)
  Sender: FDA-Public Use
  Company Number: AU-GLENMARK PHARMACEUTICALS INC, USA.-2016GMK024844

PATIENT
  Sex: Female

DRUGS (1)
  1. LAMOTRIGINE. [Suspect]
     Active Substance: LAMOTRIGINE
     Indication: EPILEPSY
     Dosage: UNK
     Route: 065
     Dates: start: 2004

REACTIONS (2)
  - Somatic delusion [Unknown]
  - Psychotic disorder [Unknown]
